FAERS Safety Report 14137105 (Version 2)
Quarter: 2017Q4

REPORT INFORMATION
  Report Type: Spontaneous
  Country: EG (occurrence: EG)
  Receive Date: 20171027
  Receipt Date: 20171109
  Transmission Date: 20180321
  Serious: Yes (Death, Hospitalization)
  Sender: FDA-Public Use
  Company Number: EG-SA-2017SA207507

PATIENT
  Age: 26 Month
  Sex: Male
  Weight: 9 kg

DRUGS (1)
  1. CEREZYME [Suspect]
     Active Substance: IMIGLUCERASE
     Indication: GAUCHER^S DISEASE TYPE III
     Dosage: DOSE: 60?UNITS: 400
     Route: 041
     Dates: start: 20161221, end: 20170909

REACTIONS (1)
  - Pneumonia [Fatal]

NARRATIVE: CASE EVENT DATE: 201710
